FAERS Safety Report 10018990 (Version 4)
Quarter: 2015Q1

REPORT INFORMATION
  Report Type: Report from Study
  Country: JP (occurrence: JP)
  Receive Date: 20140318
  Receipt Date: 20150224
  Transmission Date: 20150720
  Serious: Yes (Hospitalization, Other)
  Sender: FDA-Public Use
  Company Number: JP-GLAXOSMITHKLINE-B0977189A

PATIENT
  Age: 40 Year
  Sex: Female
  Weight: 39 kg

DRUGS (1)
  1. PAZOPANIB [Suspect]
     Active Substance: PAZOPANIB
     Indication: INFLAMMATORY MYOFIBROBLASTIC TUMOUR
     Route: 048
     Dates: start: 20130205, end: 20131003

REACTIONS (4)
  - Tumour necrosis [Recovering/Resolving]
  - Wound dehiscence [Recovering/Resolving]
  - Hypertension [Recovering/Resolving]
  - Hair colour changes [Recovered/Resolved]

NARRATIVE: CASE EVENT DATE: 20130219
